FAERS Safety Report 9898943 (Version 1)
Quarter: 2014Q1

REPORT INFORMATION
  Report Type: Spontaneous
  Country: US (occurrence: US)
  Receive Date: 20140214
  Receipt Date: 20140214
  Transmission Date: 20141002
  Serious: Yes (Death)
  Sender: FDA-Public Use
  Company Number: US-GLAXOSMITHKLINE-A1059838A

PATIENT
  Age: 46 Year
  Sex: Female

DRUGS (5)
  1. PROMACTA [Suspect]
     Indication: MYELODYSPLASTIC SYNDROME
     Dosage: 50MG PER DAY
     Route: 048
     Dates: start: 20131206
  2. CALCIUM [Concomitant]
  3. LASIX [Concomitant]
  4. POTASSIUM [Concomitant]
  5. VITAMIN B12 [Concomitant]

REACTIONS (1)
  - Death [Fatal]
